FAERS Safety Report 20046963 (Version 2)
Quarter: 2021Q4

REPORT INFORMATION
  Report Type: Report from Study
  Country: US (occurrence: US)
  Receive Date: 20211109
  Receipt Date: 20211117
  Transmission Date: 20220303
  Serious: Yes (Hospitalization, Other)
  Sender: FDA-Public Use
  Company Number: US-BIOVITRUM-2021US8733

PATIENT
  Age: 54 Year
  Sex: Female

DRUGS (4)
  1. KINERET [Suspect]
     Active Substance: ANAKINRA
     Indication: Rheumatoid arthritis
     Route: 058
     Dates: start: 202001
  2. KINERET [Suspect]
     Active Substance: ANAKINRA
     Route: 058
     Dates: start: 20200202
  3. KINERET [Suspect]
     Active Substance: ANAKINRA
     Route: 058
     Dates: start: 20200202
  4. LYRICA [Suspect]
     Active Substance: PREGABALIN

REACTIONS (8)
  - Haematemesis [Unknown]
  - Infection [Unknown]
  - Sinusitis [Unknown]
  - Ammonia increased [Unknown]
  - Blood iron decreased [Unknown]
  - Varices oesophageal [Unknown]
  - Apathy [Unknown]
  - Off label use [Unknown]

NARRATIVE: CASE EVENT DATE: 20200101
